FAERS Safety Report 7318789-0 (Version None)
Quarter: 2011Q1

REPORT INFORMATION
  Report Type: 
  Country: None (occurrence: None)
  Receive Date: 20110216
  Receipt Date: 20110203
  Transmission Date: 20110831
  Serious: Yes (Life-Threatening, Hospitalization)
  Sender: FDA-Public Use
  Company Number: 2011000652

PATIENT
  Age: 64 Year
  Sex: Male

DRUGS (13)
  1. DOCETAXEL [Suspect]
     Indication: LUNG ADENOCARCINOMA
     Dosage: 105 MG,QD, INTRAVENOUS
     Route: 042
     Dates: start: 20100808, end: 20101020
  2. MIRTAZAPINE [Concomitant]
  3. OMEPRAZOLE [Concomitant]
  4. BEVACIZUMAB [Suspect]
     Indication: LUNG ADENOCARCINOMA
     Dosage: 940 MG, QD, INTRAVENOUS
     Route: 042
     Dates: start: 20100818
  5. VICODIN [Concomitant]
  6. ERLOTINIB HYDROCHLORIDE [Suspect]
     Indication: LUNG ADENOCARCINOMA
     Dosage: 150 MG, ORAL
     Route: 048
     Dates: start: 20101110, end: 20101117
  7. LOPRESSOR [Concomitant]
  8. MULTI-VITAMIN [Concomitant]
  9. CARBOPLATIN [Suspect]
     Indication: LUNG ADENOCARCINOMA
     Dosage: 384 MG, QD, INTRAVENOUS
     Route: 042
     Dates: start: 20100818, end: 20101020
  10. MEGACE [Concomitant]
  11. VERAMYST [Concomitant]
  12. FERROUS SULFATE TAB [Concomitant]
  13. COMBIVENT [Concomitant]

REACTIONS (5)
  - BRONCHIAL FISTULA [None]
  - PNEUMOTHORAX [None]
  - SINUS TACHYCARDIA [None]
  - CONFUSIONAL STATE [None]
  - CHEST PAIN [None]
